FAERS Safety Report 25064087 (Version 1)
Quarter: 2025Q1

REPORT INFORMATION
  Report Type: Spontaneous
  Country: US (occurrence: US)
  Receive Date: 20250311
  Receipt Date: 20250311
  Transmission Date: 20250409
  Serious: No
  Sender: GLAXOSMITHKLINE
  Company Number: US-GSK-US2025026033

PATIENT
  Sex: Female

DRUGS (3)
  1. TRELEGY ELLIPTA [Suspect]
     Active Substance: FLUTICASONE FUROATE\UMECLIDINIUM BROMIDE\VILANTEROL TRIFENATATE
     Indication: Product used for unknown indication
     Dosage: 1 PUFF(S), QD; 200/62.5/25 MCG
  2. BUDESONIDE [Concomitant]
     Active Substance: BUDESONIDE
     Indication: Asthma
  3. LEVALBUTEROL [Concomitant]
     Active Substance: LEVALBUTEROL
     Indication: Asthma

REACTIONS (2)
  - Wrong technique in device usage process [Unknown]
  - Product prescribing error [Unknown]
